FAERS Safety Report 5312635-2 (Version None)
Quarter: 2007Q2

REPORT INFORMATION
  Report Type: 
  Country: None (occurrence: None)
  Receive Date: 20070430
  Receipt Date: 20070308
  Transmission Date: 20071010
  Serious: No
  Sender: FDA-Public Use
  Company Number: 2007UW03377

PATIENT
  Age: 72 Year
  Sex: Female
  Weight: 71.7 kg

DRUGS (5)
  1. NEXIUM [Suspect]
     Indication: GASTROOESOPHAGEAL REFLUX DISEASE
     Route: 048
     Dates: start: 20061001
  2. NEXIUM [Suspect]
     Indication: EROSIVE OESOPHAGITIS
     Route: 048
     Dates: start: 20061001
  3. LIPITOR [Concomitant]
  4. VITAMIN CAP [Concomitant]
  5. FISH OIL [Concomitant]

REACTIONS (2)
  - BONE PAIN [None]
  - RHEUMATOID FACTOR INCREASED [None]
